FAERS Safety Report 8927010 (Version 1)
Quarter: 2012Q4

REPORT INFORMATION
  Report Type: 
  Country: US (occurrence: US)
  Receive Date: 20121127
  Receipt Date: 20121127
  Transmission Date: 20130627
  Serious: No
  Sender: FDA-Public Use
  Company Number: US-BAYER-2012-123268

PATIENT
  Age: 80 Year
  Sex: Male
  Weight: 113 kg

DRUGS (6)
  1. ALEVE CAPLET/TABLET,MIDOL EXTENDED RELIEF CAPLET [Suspect]
     Indication: BACK ACHE
     Dosage: 2 DF, PRN
     Route: 048
     Dates: start: 20121115
  2. ALEVE CAPLET/TABLET,MIDOL EXTENDED RELIEF CAPLET [Suspect]
     Indication: BACK ACHE
     Dosage: 4 DF, ONCE
     Dates: start: 20121115
  3. WATER PILL [Concomitant]
  4. CARDIAC MEDICATION [Concomitant]
  5. FUROSEMIDE [Concomitant]
     Dosage: UNK UNK, QD
  6. CARVEDILOL [Concomitant]
     Dosage: UNK UNK, BID

REACTIONS (1)
  - Accidental overdose [None]
